FAERS Safety Report 7778151-3 (Version None)
Quarter: 2011Q3

REPORT INFORMATION
  Report Type: 
  Country: None (occurrence: None)
  Receive Date: 20110926
  Receipt Date: 20110422
  Transmission Date: 20111222
  Serious: No
  Sender: FDA-Public Use
  Company Number: US-MUTUAL PHARMACEUTICAL COMPANY, INC.-BCTM20110023

PATIENT
  Sex: Female

DRUGS (1)
  1. BACTRIM [Suspect]
     Indication: LUNG INFECTION
     Route: 065
     Dates: start: 20110210, end: 20110221

REACTIONS (1)
  - DRUG INEFFECTIVE [None]
